FAERS Safety Report 22643952 (Version 3)
Quarter: 2024Q3

REPORT INFORMATION
  Report Type: Report from Study
  Country: GB (occurrence: GB)
  Receive Date: 20230627
  Receipt Date: 20240809
  Transmission Date: 20241017
  Serious: Yes (Hospitalization, Disabling, Other)
  Sender: NOVARTIS
  Company Number: GB-002147023-NVSC2023GB144925

PATIENT
  Age: 71 Year
  Sex: Male

DRUGS (2)
  1. PLUVICTO [Suspect]
     Active Substance: LUTETIUM LU-177 VIPIVOTIDE TETRAXETAN
     Indication: Prostate cancer
     Dosage: 7.4 GBQ
     Route: 042
     Dates: start: 20230124, end: 20230124
  2. MORPHINE SULFATE [Concomitant]
     Active Substance: MORPHINE SULFATE
     Indication: Analgesic therapy
     Dosage: 30 MG
     Route: 065

REACTIONS (6)
  - Dyspnoea [Unknown]
  - Pulmonary embolism [Unknown]
  - Metastases to spine [Unknown]
  - Cancer pain [Not Recovered/Not Resolved]
  - Prostate cancer [Unknown]
  - Malignant neoplasm progression [Unknown]

NARRATIVE: CASE EVENT DATE: 20230124
